FAERS Safety Report 13731040 (Version 3)
Quarter: 2020Q3

REPORT INFORMATION
  Report Type: Spontaneous
  Country: US (occurrence: US)
  Receive Date: 20170707
  Receipt Date: 20200715
  Transmission Date: 20201102
  Serious: Yes (Hospitalization)
  Sender: FDA-Public Use
  Company Number: US-JNJFOC-20170615331

PATIENT
  Age: 46 Year
  Sex: Female

DRUGS (3)
  1. XARELTO [Suspect]
     Active Substance: RIVAROXABAN
     Indication: THROMBOSIS PROPHYLAXIS
  2. XARELTO [Suspect]
     Active Substance: RIVAROXABAN
     Indication: CEREBROVASCULAR ACCIDENT PROPHYLAXIS
     Route: 048
     Dates: start: 20140208, end: 20150125
  3. XARELTO [Suspect]
     Active Substance: RIVAROXABAN
     Indication: ATRIAL FIBRILLATION

REACTIONS (2)
  - Haematuria [Not Recovered/Not Resolved]
  - Hydronephrosis [Not Recovered/Not Resolved]

NARRATIVE: CASE EVENT DATE: 201412
